FAERS Safety Report 19943933 (Version 8)
Quarter: 2022Q1

REPORT INFORMATION
  Report Type: Report from Study
  Country: CN (occurrence: CN)
  Receive Date: 20211012
  Receipt Date: 20220221
  Transmission Date: 20220424
  Serious: Yes (Hospitalization)
  Sender: FDA-Public Use
  Company Number: CN-ELI_LILLY_AND_COMPANY-CN202110000354

PATIENT
  Age: 66 Year
  Sex: Female
  Weight: 59 kg

DRUGS (9)
  1. PEMETREXED [Suspect]
     Active Substance: PEMETREXED
     Indication: Non-small cell lung cancer metastatic
     Dosage: 500 MG/M2, EVERY THREE WEEKS (Q3W)
     Route: 042
     Dates: start: 20210816, end: 20210816
  2. PEMETREXED [Suspect]
     Active Substance: PEMETREXED
     Dosage: 500 MG/M2 EVERY THREE WEEKS (Q3W)
     Route: 042
     Dates: start: 20210907, end: 20210907
  3. PEMETREXED [Suspect]
     Active Substance: PEMETREXED
     Dosage: 500 MG/M2 EVERY THREE WEEKS (Q3W)
     Route: 042
     Dates: start: 20211020
  4. PEMBROLIZUMAB [Concomitant]
     Active Substance: PEMBROLIZUMAB
     Indication: Non-small cell lung cancer metastatic
     Dosage: 200 MG, EVERY THREE WEEKS (Q3W)
     Route: 042
     Dates: start: 20210816, end: 20210816
  5. PEMBROLIZUMAB [Concomitant]
     Active Substance: PEMBROLIZUMAB
     Dosage: 200 MG EVERY THREE WEEKS (Q3W)
     Route: 042
     Dates: start: 20210907, end: 20210907
  6. PEMBROLIZUMAB [Concomitant]
     Active Substance: PEMBROLIZUMAB
     Dosage: 200 MG EVERY THREE WEEKS (Q3W)
     Route: 042
     Dates: start: 20220127
  7. CARBOPLATIN [Concomitant]
     Active Substance: CARBOPLATIN
     Indication: Non-small cell lung cancer metastatic
     Dosage: AUC 5 MG/ML/MIN, EVERY THREE WEEKS (Q3W)
     Route: 042
     Dates: start: 20210816, end: 20210816
  8. CARBOPLATIN [Concomitant]
     Active Substance: CARBOPLATIN
     Dosage: AUC 5 MG/ML/MIN, EVERY THREE WEEKS (Q3W)
     Route: 042
     Dates: start: 20210907, end: 20210907
  9. CARBOPLATIN [Concomitant]
     Active Substance: CARBOPLATIN
     Dosage: AUC 5 MG/ML/MIN, EVERY THREE WEEKS (Q3W)
     Route: 042
     Dates: start: 20211020

REACTIONS (1)
  - Hepatic function abnormal [Recovered/Resolved]

NARRATIVE: CASE EVENT DATE: 20210927
